FAERS Safety Report 9494219 (Version 1)
Quarter: 2013Q3

REPORT INFORMATION
  Report Type: Spontaneous
  Country: DE (occurrence: DE)
  Receive Date: 20130903
  Receipt Date: 20130903
  Transmission Date: 20140515
  Serious: Yes (Other)
  Sender: FDA-Public Use
  Company Number: DE-JNJFOC-20130816917

PATIENT
  Age: 34 Year
  Sex: Female
  Weight: 63 kg

DRUGS (6)
  1. XARELTO [Suspect]
     Indication: DEEP VEIN THROMBOSIS
     Route: 048
     Dates: start: 20130726, end: 20130802
  2. PANTOZOL [Concomitant]
     Indication: ABDOMINAL PAIN UPPER
     Route: 065
     Dates: start: 20130731, end: 20130807
  3. IBUPROFEN [Concomitant]
     Indication: ARTHRALGIA
     Route: 065
     Dates: start: 20130731, end: 20130807
  4. IBUPROFEN [Concomitant]
     Indication: ARTHRALGIA
     Route: 065
  5. IBUPROFEN [Concomitant]
     Indication: HEADACHE
     Route: 065
  6. IBUPROFEN [Concomitant]
     Indication: HEADACHE
     Route: 065
     Dates: start: 20130731, end: 20130807

REACTIONS (5)
  - Dyspnoea [Recovered/Resolved]
  - Intracranial venous sinus thrombosis [Recovered/Resolved]
  - Asthenia [Recovered/Resolved]
  - Headache [Recovered/Resolved]
  - Malaise [Recovered/Resolved]
